FAERS Safety Report 9971236 (Version 1)
Quarter: 2014Q1

REPORT INFORMATION
  Report Type: Report from Study
  Country: US (occurrence: US)
  Receive Date: 20140306
  Receipt Date: 20140306
  Transmission Date: 20141002
  Serious: No
  Sender: FDA-Public Use
  Company Number: US-ABBVIE-13P-163-1147903-00

PATIENT
  Age: 44 Year
  Sex: Female

DRUGS (7)
  1. HUMIRA [Suspect]
     Indication: PSORIATIC ARTHROPATHY
     Dates: start: 20130708
  2. ZONISAMIDE [Concomitant]
     Indication: MIGRAINE PROPHYLAXIS
     Dosage: EVERY BEDTIME
  3. TRAMADOL [Concomitant]
     Indication: PSORIATIC ARTHROPATHY
     Dosage: 1 OR 2 EVERY BEDTIME
  4. TRAMADOL [Concomitant]
     Indication: ARTHRALGIA
  5. ALPRAZOLAM [Concomitant]
     Indication: MIGRAINE PROPHYLAXIS
     Dosage: 1/2 DAILY
  6. ALBUTEROL [Concomitant]
     Indication: ASTHMA
  7. MVI [Concomitant]
     Indication: PRODUCT USED FOR UNKNOWN INDICATION
     Dosage: DAILY

REACTIONS (3)
  - Intervertebral disc protrusion [Not Recovered/Not Resolved]
  - Gastric disorder [Unknown]
  - Diarrhoea [Unknown]
